FAERS Safety Report 7617731-2 (Version None)
Quarter: 2011Q3

REPORT INFORMATION
  Report Type: 
  Country: None (occurrence: None)
  Receive Date: 20110718
  Receipt Date: 20110712
  Transmission Date: 20111222
  Serious: Yes (Death, Other)
  Sender: FDA-Public Use
  Company Number: PHHY2011AU62484

PATIENT
  Age: 26 Year
  Sex: Female

DRUGS (8)
  1. NORDIAZEPAM [Interacting]
     Dosage: UNK
  2. IBUPROFEN [Interacting]
     Dosage: UNK
  3. METHYLENEDIOXYMETHAMPHETAMINE [Interacting]
     Dosage: UNK
  4. DIAZEPAM [Interacting]
     Dosage: UNK
  5. AMPHETAMINE [Interacting]
     Dosage: UNK
  6. METHAMPHETAMINE HYDROCHLORIDE [Interacting]
     Dosage: UNK
  7. OLANZAPINE [Interacting]
     Dosage: UNK
  8. FLUVOXAMINE [Suspect]
     Dosage: UNK

REACTIONS (3)
  - DRUG INTERACTION [None]
  - TOXICITY TO VARIOUS AGENTS [None]
  - HEPATITIS C [None]
